FAERS Safety Report 8107095-2 (Version None)
Quarter: 2012Q1

REPORT INFORMATION
  Report Type: 
  Country: None (occurrence: None)
  Receive Date: 20120202
  Receipt Date: 20120120
  Transmission Date: 20120608
  Serious: Yes (Hospitalization)
  Sender: FDA-Public Use
  Company Number: PL-UCBSA-047747

PATIENT
  Age: 74 Year
  Sex: Female
  Weight: 81 kg

DRUGS (19)
  1. ARAVA [Concomitant]
     Indication: RHEUMATOID ARTHRITIS
     Route: 048
     Dates: start: 20110307, end: 20111130
  2. PREDNISONE [Concomitant]
     Route: 048
     Dates: start: 20120106
  3. TRAMADOL HCL [Concomitant]
     Route: 048
     Dates: start: 20111216
  4. ARAVA [Concomitant]
     Route: 048
     Dates: start: 20111217, end: 20111228
  5. PREDNISONE [Concomitant]
     Indication: RHEUMATOID ARTHRITIS
     Route: 048
     Dates: start: 20110107, end: 20111206
  6. CIMZIA [Suspect]
     Indication: RHEUMATOID ARTHRITIS
     Route: 058
     Dates: start: 20101201, end: 20111130
  7. TRAMADOL HCL [Concomitant]
     Indication: ANALGESIC THERAPY
     Dosage: 1 TAB AS NECESSARY
     Route: 048
     Dates: start: 20110307, end: 20111215
  8. ENOXAPARIN SODIUM [Concomitant]
     Indication: THROMBOSIS PROPHYLAXIS
     Route: 058
     Dates: start: 20111201
  9. TRAMADOL HYDROCHLORIDE [Concomitant]
     Indication: OSTEOARTHRITIS
     Route: 048
     Dates: start: 20110307
  10. TRAMADOL HCL [Concomitant]
     Route: 048
     Dates: start: 20111216
  11. PREDNISONE [Concomitant]
     Route: 048
     Dates: start: 20111207, end: 20111230
  12. PREDNISONE [Concomitant]
     Route: 048
     Dates: start: 20111231, end: 20120105
  13. CALPEROS [Concomitant]
     Indication: OSTEOPOROSIS PROPHYLAXIS
     Route: 048
     Dates: start: 20090901
  14. AULIN [Concomitant]
     Indication: RHEUMATOID ARTHRITIS
     Route: 048
     Dates: start: 20091015
  15. TRAMADOL HCL [Concomitant]
     Route: 048
     Dates: start: 20111216
  16. OMEPRAZOLE [Concomitant]
     Indication: PROPHYLAXIS
     Route: 048
     Dates: start: 20090901
  17. TRAMADOL HYDROCHLORIDE [Concomitant]
     Indication: RHEUMATOID ARTHRITIS
     Route: 048
     Dates: start: 20110307
  18. TRAMADOL HCL [Concomitant]
     Indication: RHEUMATOID ARTHRITIS
     Dosage: 1 TAB AS NECESSARY
     Route: 048
     Dates: start: 20110307, end: 20111215
  19. TRAMADOL HCL [Concomitant]
     Indication: OSTEOARTHRITIS
     Dosage: 1 TAB AS NECESSARY
     Route: 048
     Dates: start: 20110307, end: 20111215

REACTIONS (1)
  - JOINT PROSTHESIS USER [None]
